FAERS Safety Report 11038076 (Version 1)
Quarter: 2015Q2

REPORT INFORMATION
  Report Type: Report from Study
  Country: CA (occurrence: CA)
  Receive Date: 20150416
  Receipt Date: 20150416
  Transmission Date: 20150821
  Serious: Yes (Hospitalization, Other)
  Sender: FDA-Public Use
  Company Number: CA-ABBVIE-15K-028-1374671-00

PATIENT
  Sex: Female
  Weight: 104.42 kg

DRUGS (3)
  1. HUMIRA [Suspect]
     Active Substance: ADALIMUMAB
     Route: 058
     Dates: end: 201411
  2. HUMIRA [Suspect]
     Active Substance: ADALIMUMAB
     Indication: CROHN^S DISEASE
     Route: 058
     Dates: start: 20100514, end: 2013
  3. HUMIRA [Suspect]
     Active Substance: ADALIMUMAB
     Route: 058
     Dates: start: 20150329

REACTIONS (12)
  - Cholelithiasis [Recovered/Resolved]
  - Migraine [Not Recovered/Not Resolved]
  - Nerve injury [Not Recovered/Not Resolved]
  - Sinusitis [Unknown]
  - Arthralgia [Not Recovered/Not Resolved]
  - Hernia [Recovered/Resolved]
  - Herpes zoster [Recovered/Resolved]
  - Tremor [Not Recovered/Not Resolved]
  - Wound dehiscence [Recovered/Resolved]
  - Vertigo [Not Recovered/Not Resolved]
  - Blindness unilateral [Not Recovered/Not Resolved]
  - Crohn^s disease [Not Recovered/Not Resolved]

NARRATIVE: CASE EVENT DATE: 2013
